FAERS Safety Report 24392600 (Version 6)
Quarter: 2024Q4

REPORT INFORMATION
  Report Type: Spontaneous
  Country: US (occurrence: US)
  Receive Date: 20241003
  Receipt Date: 20241115
  Transmission Date: 20250115
  Serious: Yes (Other)
  Sender: BIOGEN
  Company Number: US-BIOGEN-2024BI01284504

PATIENT
  Sex: Male

DRUGS (1)
  1. SPINRAZA [Suspect]
     Active Substance: NUSINERSEN
     Indication: Spinal muscular atrophy
     Route: 050
     Dates: start: 20221215

REACTIONS (6)
  - Bone disorder [Unknown]
  - Lethargy [Unknown]
  - Asthenia [Unknown]
  - Mobility decreased [Unknown]
  - Bradykinesia [Not Recovered/Not Resolved]
  - Motor dysfunction [Unknown]

NARRATIVE: CASE EVENT DATE: 20240101
